FAERS Safety Report 19031734 (Version 1)
Quarter: 2021Q1

REPORT INFORMATION
  Report Type: Spontaneous
  Country: BE (occurrence: BE)
  Receive Date: 20210319
  Receipt Date: 20210319
  Transmission Date: 20210420
  Serious: Yes (Disabling)
  Sender: FDA-Public Use
  Company Number: BE-PFIZER INC-2021250340

PATIENT
  Age: 57 Year
  Sex: Female
  Weight: 62 kg

DRUGS (9)
  1. ATORVASTATIN TEVA [Suspect]
     Active Substance: ATORVASTATIN
     Indication: HYPERCHOLESTEROLAEMIA
     Dosage: 1 DF, 1X/DAY
     Route: 048
     Dates: start: 20210215
  2. KEYTRUDA [Concomitant]
     Active Substance: PEMBROLIZUMAB
  3. PANTOMED [DEXPANTHENOL] [Concomitant]
  4. LORAMET [Concomitant]
     Active Substance: LORMETAZEPAM
  5. ALPRAZOLAM. [Concomitant]
     Active Substance: ALPRAZOLAM
  6. ATORVASTATIN [Suspect]
     Active Substance: ATORVASTATIN
     Indication: HYPERCHOLESTEROLAEMIA
     Dosage: 1DF, NR SERIES 1G3C0AWU26
     Route: 048
     Dates: start: 20210201, end: 20210201
  7. MEDROL [Concomitant]
     Active Substance: METHYLPREDNISOLONE
  8. PEMETREXED. [Concomitant]
     Active Substance: PEMETREXED
  9. SEEBRI BREEZHALER [Concomitant]
     Active Substance: GLYCOPYRROLATE

REACTIONS (4)
  - Hypotension [Recovered/Resolved]
  - Dizziness [Recovered/Resolved]
  - Vertigo [Recovered/Resolved]
  - General physical health deterioration [Recovered/Resolved]
